FAERS Safety Report 10984039 (Version 1)
Quarter: 2015Q2

REPORT INFORMATION
  Report Type: Spontaneous
  Country: US (occurrence: US)
  Receive Date: 20150403
  Receipt Date: 20150403
  Transmission Date: 20150821
  Serious: No
  Sender: FDA-Public Use
  Company Number: US-PFIZER INC-2015114529

PATIENT
  Age: 56 Year
  Sex: Female

DRUGS (1)
  1. LYRICA [Suspect]
     Active Substance: PREGABALIN
     Dosage: UNK

REACTIONS (8)
  - Pain in extremity [Unknown]
  - Anxiety [Unknown]
  - Hypersensitivity [Unknown]
  - Mental disorder [Unknown]
  - Osteoarthritis [Unknown]
  - Migraine [Unknown]
  - Depression [Unknown]
  - Drug ineffective [Unknown]
